FAERS Safety Report 10533467 (Version 2)
Quarter: 2014Q4

REPORT INFORMATION
  Report Type: Spontaneous
  Country: US (occurrence: US)
  Receive Date: 20141022
  Receipt Date: 20141203
  Transmission Date: 20150529
  Serious: No
  Sender: FDA-Public Use
  Company Number: US-AMGEN INC.-USASP2014079893

PATIENT
  Age: 63 Year
  Sex: Female
  Weight: 107.94 kg

DRUGS (17)
  1. HYDROXYCHLOROQUINE SULFATE. [Concomitant]
     Active Substance: HYDROXYCHLOROQUINE SULFATE
     Dosage: 200 MG, BID
     Route: 048
     Dates: start: 20120309
  2. HYDROXYCHLOROQUINE SULFATE. [Concomitant]
     Active Substance: HYDROXYCHLOROQUINE SULFATE
     Dosage: 180[TABLET] X 3,
     Dates: start: 20120523
  3. HYDROXYCHLOROQUINE SULFATE. [Concomitant]
     Active Substance: HYDROXYCHLOROQUINE SULFATE
     Dosage: 180[TABLET] X 3,
     Dates: start: 20130715
  4. HYDROXYCHLOROQUINE SULFATE. [Concomitant]
     Active Substance: HYDROXYCHLOROQUINE SULFATE
     Dosage: 180[TABLET] X 3,
     Dates: start: 20121024
  5. CELEBREX [Concomitant]
     Active Substance: CELECOXIB
     Dosage: 200 MG, ONCE OR TWICE A DAY WHEN NEEDED
     Dates: start: 20121024
  6. ENBREL [Suspect]
     Active Substance: ETANERCEPT
     Indication: RHEUMATOID ARTHRITIS
     Dosage: 50 MG, QWK
     Route: 058
     Dates: start: 20140701
  7. CELEBREX [Concomitant]
     Active Substance: CELECOXIB
     Dosage: 60 CAPSULE[CAPSULEL X 5,
     Dates: start: 20131205
  8. SULFASALAZINE. [Concomitant]
     Active Substance: SULFASALAZINE
     Dosage: TAKE 3 TABLET BID
     Dates: start: 20130415
  9. SULFASALAZINE. [Concomitant]
     Active Substance: SULFASALAZINE
     Dosage: 540 TABLET X 3
     Dates: start: 20140129
  10. SULFASALAZINE. [Concomitant]
     Active Substance: SULFASALAZINE
     Dosage: 540 TABLET X 3,
     Dates: start: 20130715
  11. OXYCONTIN [Concomitant]
     Active Substance: OXYCODONE HYDROCHLORIDE
     Dosage: 60 MG, BID
     Route: 048
     Dates: start: 20131230
  12. ROXICODONE [Concomitant]
     Active Substance: OXYCODONE HYDROCHLORIDE
     Dosage: 30 MG, 4 TIMES DAILY
     Route: 048
     Dates: start: 20101020
  13. CELEBREX [Concomitant]
     Active Substance: CELECOXIB
     Dosage: 180 X 3
     Dates: start: 20140129
  14. CELEBREX [Concomitant]
     Active Substance: CELECOXIB
     Dosage: 60[CAPSULE] X 3
     Dates: start: 20121024
  15. SULFASALAZINE. [Concomitant]
     Active Substance: SULFASALAZINE
     Dosage: 540 TABLET X 3,
     Dates: start: 20130616
  16. HYDROXYCHLOROQUINE SULFATE. [Concomitant]
     Active Substance: HYDROXYCHLOROQUINE SULFATE
     Dosage: 180 X 3,
     Dates: start: 20140129
  17. CELEBREX [Concomitant]
     Active Substance: CELECOXIB
     Dosage: 60[CAPSULE] X 3,
     Dates: start: 20130715

REACTIONS (5)
  - Heart rate increased [Unknown]
  - Drug ineffective [Not Recovered/Not Resolved]
  - Throat irritation [Unknown]
  - Nasal congestion [Unknown]
  - Pyrexia [Unknown]

NARRATIVE: CASE EVENT DATE: 201407
